FAERS Safety Report 17606691 (Version 1)
Quarter: 2020Q1

REPORT INFORMATION
  Report Type: Report from Study
  Country: DE (occurrence: DE)
  Receive Date: 20200331
  Receipt Date: 20200331
  Transmission Date: 20200409
  Serious: Yes (Hospitalization, Other)
  Sender: FDA-Public Use
  Company Number: DE-VANDA PHARMACEUTICALS, INC-2020TASDE003874

PATIENT

DRUGS (2)
  1. HETLIOZ [Suspect]
     Active Substance: TASIMELTEON
     Indication: NON-24-HOUR SLEEP-WAKE DISORDER
     Dosage: 20 MG, QD
     Route: 048
     Dates: start: 20190831, end: 20200124
  2. HETLIOZ [Suspect]
     Active Substance: TASIMELTEON
     Dosage: 20 MG, QD
     Route: 048
     Dates: start: 20200317

REACTIONS (8)
  - Coma [Recovered/Resolved]
  - Fluid retention [Unknown]
  - Gait disturbance [Recovering/Resolving]
  - Lower limb fracture [Recovering/Resolving]
  - Circulatory collapse [Unknown]
  - Haemorrhage [Unknown]
  - Nasopharyngitis [Unknown]
  - Fall [Unknown]

NARRATIVE: CASE EVENT DATE: 201912
